FAERS Safety Report 9570289 (Version 2)
Quarter: 2013Q3

REPORT INFORMATION
  Report Type: Spontaneous
  Country: US (occurrence: US)
  Receive Date: 20130930
  Receipt Date: 20130930
  Transmission Date: 20140515
  Serious: Yes (Other)
  Sender: FDA-Public Use
  Company Number: US-AMGEN-USASP2013051289

PATIENT
  Age: 55 Year
  Sex: Female
  Weight: 104.76 kg

DRUGS (8)
  1. ENBREL [Suspect]
     Indication: RHEUMATOID ARTHRITIS
     Dosage: 50 MG, QWK
     Route: 058
     Dates: start: 20121129
  2. DAYPRO [Concomitant]
     Dosage: 600 MG, UNK
  3. SYNTHROID [Concomitant]
     Dosage: 100 MUG, UNK
  4. PREMARIN [Concomitant]
     Dosage: 25 MG, UNK
  5. AMBIEN [Concomitant]
     Dosage: 10 MG, UNK
  6. LORTAB                             /00607101/ [Concomitant]
     Dosage: UNK
  7. MULTIVITAMINS W/MINERALS [Concomitant]
     Dosage: UNK
  8. CALCIUM [Concomitant]
     Dosage: 500 UNK, UNK

REACTIONS (5)
  - Urinary tract infection [Unknown]
  - Infection [Recovered/Resolved]
  - Injection site pain [Unknown]
  - Injection site swelling [Unknown]
  - Scratch [Recovered/Resolved]
